FAERS Safety Report 24913659 (Version 1)
Quarter: 2025Q1

REPORT INFORMATION
  Report Type: Spontaneous
  Country: CA (occurrence: CA)
  Receive Date: 20250201
  Receipt Date: 20250201
  Transmission Date: 20250408
  Serious: Yes (Hospitalization, Other)
  Sender: MERCK
  Company Number: CA-009507513-2501USA010024

PATIENT
  Age: 69 Year
  Sex: Female

DRUGS (2)
  1. STROMECTOL [Suspect]
     Active Substance: IVERMECTIN
     Indication: Small cell lung cancer
     Route: 048
  2. FENBENDAZOLE [Suspect]
     Active Substance: FENBENDAZOLE
     Indication: Small cell lung cancer
     Dosage: 1 MILLIGRAM/KILOGRAM, QD
     Route: 065

REACTIONS (5)
  - Febrile neutropenia [Unknown]
  - Infection [Unknown]
  - Bone density increased [Unknown]
  - Scoliosis [Unknown]
  - Drug effective for unapproved indication [Unknown]
